FAERS Safety Report 8844914 (Version 1)
Quarter: 2012Q4

REPORT INFORMATION
  Report Type: Spontaneous
  Country: US (occurrence: None)
  Receive Date: 20121002
  Receipt Date: 20121002
  Transmission Date: 20130627
  Serious: Yes (Hospitalization)
  Sender: FDA-Public Use
  Company Number: RB-40877-2012

PATIENT
  Age: 39 Year
  Sex: Male

DRUGS (2)
  1. SUBOXONE [Suspect]
     Indication: PRODUCT USED FOR UNKNOWN INDICATION
     Dates: end: 201205
  2. SUBOXONE [Suspect]
     Dates: end: 201205

REACTIONS (12)
  - Withdrawal syndrome [None]
  - Abdominal pain upper [None]
  - Tremor [None]
  - Anxiety [None]
  - Dysphemia [None]
  - Muscle spasms [None]
  - Pain [None]
  - Nausea [None]
  - Vomiting [None]
  - Diarrhoea [None]
  - Condition aggravated [None]
  - Pain in extremity [None]
